FAERS Safety Report 9373879 (Version 1)
Quarter: 2013Q2

REPORT INFORMATION
  Report Type: Report from Study
  Country: BR (occurrence: BR)
  Receive Date: 20130628
  Receipt Date: 20130628
  Transmission Date: 20140414
  Serious: Yes (Other)
  Sender: FDA-Public Use
  Company Number: BR-ROCHE-1090047

PATIENT
  Age: 5 Year
  Sex: Female
  Weight: 15 kg

DRUGS (6)
  1. ACTEMRA [Suspect]
     Indication: RHEUMATOID ARTHRITIS
     Dosage: LAST DOSE PRIOR TO SAE 10/AUG/2012
     Route: 042
     Dates: start: 20111129
  2. IBUPROFEN [Concomitant]
     Indication: PAIN
  3. HUMIRA [Concomitant]
  4. METHOTREXATE [Concomitant]
  5. PREDNISONE [Concomitant]
  6. FOLIC ACID [Concomitant]

REACTIONS (3)
  - Urinary tract infection [Unknown]
  - Hypersensitivity [Unknown]
  - Umbilical hernia [Not Recovered/Not Resolved]
